FAERS Safety Report 7964156-6 (Version None)
Quarter: 2011Q4

REPORT INFORMATION
  Report Type: 
  Country: None (occurrence: None)
  Receive Date: 20111208
  Receipt Date: 20111128
  Transmission Date: 20120403
  Serious: Yes (Hospitalization, Other)
  Sender: FDA-Public Use
  Company Number: GB-BRISTOL-MYERS SQUIBB COMPANY-16262545

PATIENT
  Age: 53 Year
  Sex: Male

DRUGS (10)
  1. NAPROXEN [Concomitant]
     Dates: start: 20110826
  2. OMEPRAZOLE [Concomitant]
     Dates: start: 20110826
  3. AMLODIPINE [Concomitant]
  4. METFORMIN HCL [Suspect]
     Indication: DIABETES MELLITUS
     Dosage: 2GM
     Route: 048
     Dates: end: 20110915
  5. ASPIRIN [Concomitant]
  6. NOVOLOG MIX 70/30 [Concomitant]
  7. ATENOLOL [Concomitant]
  8. RAMIPRIL [Concomitant]
  9. ATORVASTATIN [Suspect]
     Route: 048
     Dates: end: 20110915
  10. QUININE [Concomitant]
     Dates: start: 20110826

REACTIONS (8)
  - RENAL FAILURE ACUTE [None]
  - RHABDOMYOLYSIS [None]
  - BACK PAIN [None]
  - MUSCLE SPASMS [None]
  - BLOOD CREATININE INCREASED [None]
  - HYPOTHYROIDISM [None]
  - BLOOD CREATINE PHOSPHOKINASE INCREASED [None]
  - LETHARGY [None]
